FAERS Safety Report 5066639-8 (Version None)
Quarter: 2006Q3

REPORT INFORMATION
  Report Type: 
  Country: None (occurrence: None)
  Receive Date: 20060801
  Receipt Date: 20060717
  Transmission Date: 20061208
  Serious: Yes (Other)
  Sender: FDA-Public Use
  Company Number: GB-AVENTIS-200617873GDDC

PATIENT
  Age: 15 Year
  Sex: Male

DRUGS (2)
  1. LANTUS [Suspect]
  2. AUTOPEN 24 [Suspect]

REACTIONS (3)
  - DIABETIC KETOACIDOSIS [None]
  - INCORRECT DOSE ADMINISTERED [None]
  - PHARMACEUTICAL PRODUCT COMPLAINT [None]
